FAERS Safety Report 21497873 (Version 1)
Quarter: 2022Q4

REPORT INFORMATION
  Report Type: Spontaneous
  Country: GB (occurrence: GB)
  Receive Date: 20221024
  Receipt Date: 20221024
  Transmission Date: 20230112
  Serious: Yes (Other)
  Sender: FDA-Public Use
  Company Number: GB-CELLTRION INC.-2022GB017098

PATIENT

DRUGS (1)
  1. INFLIXIMAB [Suspect]
     Active Substance: INFLIXIMAB
     Indication: Colitis ulcerative
     Dosage: 120 MG PREFILLED PEN EVERY WEEK
     Route: 058

REACTIONS (3)
  - Colitis ulcerative [Unknown]
  - Drug ineffective [Unknown]
  - Off label use [Unknown]
